FAERS Safety Report 10473191 (Version 1)
Quarter: 2014Q3

REPORT INFORMATION
  Report Type: Spontaneous
  Country: CA (occurrence: None)
  Receive Date: 20140922
  Receipt Date: 20140922
  Transmission Date: 20150326
  Serious: Yes (Death)
  Sender: FDA-Public Use
  Company Number: KAD201409-001121

PATIENT

DRUGS (1)
  1. INFLIXIMAB (INFLIXIMAB) [Suspect]
     Active Substance: INFLIXIMAB
     Indication: HEPATITIS C

REACTIONS (2)
  - Hepatic cirrhosis [None]
  - Tumour necrosis [None]
